FAERS Safety Report 9719467 (Version 1)
Quarter: 2013Q4

REPORT INFORMATION
  Report Type: Spontaneous
  Country: DE (occurrence: DE)
  Receive Date: 20131128
  Receipt Date: 20131128
  Transmission Date: 20140711
  Serious: Yes (Other)
  Sender: FDA-Public Use
  Company Number: DE-AMGEN-DEUSP2013084040

PATIENT
  Age: 66 Year
  Sex: Female

DRUGS (11)
  1. ENBREL [Suspect]
     Indication: PSORIASIS
     Dosage: 50 MG, WEEKLY
     Route: 065
     Dates: start: 20080317, end: 20131114
  2. ARAVA [Concomitant]
     Dosage: 20 MG, ALTERNATE DAY
  3. PIROXICAM [Concomitant]
     Dosage: 20 MG, UNK
  4. VALORON                            /00205402/ [Concomitant]
     Dosage: UNK
  5. AMINEURIN [Concomitant]
     Dosage: 25 MG, UNK
  6. COAPROVEL [Concomitant]
     Dosage: 1X1
  7. VERAPAMIL [Concomitant]
     Dosage: 480 MG, UNK
  8. NORFLEX                            /00018303/ [Concomitant]
     Dosage: UNK
  9. SYMBICORT [Concomitant]
     Dosage: 2X1 HUB
  10. OXYBUTYNIN [Concomitant]
     Dosage: 2.5 MG, UNK
  11. CLINDAHEXAL                        /00166002/ [Concomitant]
     Dosage: 1200 MG, (30 MG)

REACTIONS (1)
  - Ovarian cancer [Not Recovered/Not Resolved]
